FAERS Safety Report 21830464 (Version 2)
Quarter: 2023Q1

REPORT INFORMATION
  Report Type: Report from Study
  Country: GB (occurrence: GB)
  Receive Date: 20230106
  Receipt Date: 20230208
  Transmission Date: 20230418
  Serious: Yes (Hospitalization, Other)
  Sender: FDA-Public Use
  Company Number: GB-GLAXOSMITHKLINE-GB2023EME001015

PATIENT

DRUGS (1)
  1. MEPOLIZUMAB [Suspect]
     Active Substance: MEPOLIZUMAB
     Indication: Asthma
     Dosage: 100 MG
     Dates: start: 202211

REACTIONS (5)
  - Pseudomonas infection [Unknown]
  - Bronchiectasis [Unknown]
  - Staphylococcal infection [Unknown]
  - COVID-19 [Unknown]
  - Influenza [Unknown]
